FAERS Safety Report 14067832 (Version 1)
Quarter: 2017Q4

REPORT INFORMATION
  Report Type: Spontaneous
  Country: US (occurrence: US)
  Receive Date: 20171010
  Receipt Date: 20171010
  Transmission Date: 20180321
  Serious: No
  Sender: FDA-Public Use
  Company Number: US-TEVA-808204USA

PATIENT
  Age: 69 Year
  Sex: Female
  Weight: 149.82 kg

DRUGS (1)
  1. PROAIR RESPICLICK [Suspect]
     Active Substance: ALBUTEROL SULFATE
     Indication: ASTHMA EXERCISE INDUCED
     Dosage: TWO PUFFS EVERY EIGHT HOURS AS NEEDED
     Dates: start: 20170801

REACTIONS (3)
  - Drug dose omission [Not Recovered/Not Resolved]
  - Product storage error [Unknown]
  - Asthma [Recovered/Resolved]

NARRATIVE: CASE EVENT DATE: 201709
